FAERS Safety Report 5199872-5 (Version None)
Quarter: 2007Q1

REPORT INFORMATION
  Report Type: 
  Country: None (occurrence: None)
  Receive Date: 20070102
  Receipt Date: 20070102
  Transmission Date: 20070707
  Serious: Yes (Other)
  Sender: FDA-Public Use
  Company Number: None

PATIENT
  Age: 39 Year
  Sex: Female
  Weight: 70.7611 kg

DRUGS (1)
  1. ZOLOFT [Suspect]
     Indication: ANXIETY
     Dosage: 100 MG ONCE A DAY PO
     Route: 048
     Dates: start: 20050301, end: 20061221

REACTIONS (14)
  - ARTHRALGIA [None]
  - DYSPHAGIA [None]
  - DYSPHONIA [None]
  - JOINT STIFFNESS [None]
  - MUSCULOSKELETAL STIFFNESS [None]
  - MYALGIA [None]
  - ODYNOPHAGIA [None]
  - PAIN IN EXTREMITY [None]
  - PAIN IN JAW [None]
  - PARAESTHESIA [None]
  - PARAESTHESIA ORAL [None]
  - SENSATION OF FOREIGN BODY [None]
  - SWOLLEN TONGUE [None]
  - URTICARIA [None]
